FAERS Safety Report 17107477 (Version 4)
Quarter: 2022Q1

REPORT INFORMATION
  Report Type: Spontaneous
  Country: US (occurrence: US)
  Receive Date: 20191203
  Receipt Date: 20220208
  Transmission Date: 20220424
  Serious: Yes (Other)
  Sender: FDA-Public Use
  Company Number: US-BIOCODEX2-201901559

PATIENT

DRUGS (7)
  1. DIACOMIT [Suspect]
     Active Substance: STIRIPENTOL
     Indication: Severe myoclonic epilepsy of infancy
     Dosage: 500 MG TWICE DAILY
     Route: 065
     Dates: start: 20190822
  2. DIACOMIT [Suspect]
     Active Substance: STIRIPENTOL
     Dosage: 750MG TWICE DAILY
     Route: 065
  3. ONFI [Concomitant]
     Active Substance: CLOBAZAM
     Indication: Severe myoclonic epilepsy of infancy
     Route: 065
  4. ZONISAMIDE [Concomitant]
     Active Substance: ZONISAMIDE
     Indication: Product used for unknown indication
     Route: 065
  5. DEPAKOTE [Concomitant]
     Active Substance: DIVALPROEX SODIUM
     Indication: Product used for unknown indication
     Route: 065
  6. KEPPRA [Concomitant]
     Active Substance: LEVETIRACETAM
     Indication: Product used for unknown indication
     Route: 065
  7. FINTEPLA [Concomitant]
     Active Substance: FENFLURAMINE
     Indication: Product used for unknown indication
     Route: 065
     Dates: end: 20210113

REACTIONS (5)
  - Renal impairment [Unknown]
  - Dehydration [Unknown]
  - Decreased appetite [Unknown]
  - Fatigue [Unknown]
  - Drug interaction [Unknown]
